FAERS Safety Report 7830021-8 (Version None)
Quarter: 2011Q4

REPORT INFORMATION
  Report Type: 
  Country: None (occurrence: None)
  Receive Date: 20111021
  Receipt Date: 20111017
  Transmission Date: 20120403
  Serious: Yes (Other)
  Sender: FDA-Public Use
  Company Number: US-NAPPMUNDI-USA-2011-0074853

PATIENT
  Sex: Female
  Weight: 88.435 kg

DRUGS (6)
  1. CLONAZEPAM [Suspect]
     Indication: POOR QUALITY SLEEP
     Dosage: 1 MG, UNK
     Dates: start: 20101004
  2. BUTRANS [Suspect]
     Dosage: 10 MCG/HR, DAILY
     Dates: start: 20110820, end: 20110909
  3. TIZANIDINE HCL [Suspect]
     Indication: MUSCLE SPASMS
  4. PERCOCET [Suspect]
     Indication: PAIN
     Dosage: 5 MG, UNK
  5. BUTRANS [Suspect]
     Indication: ARTHRALGIA
     Dosage: 10 MCG/HR, DAILY
     Dates: start: 20110418, end: 20110610
  6. TIZANIDINE HCL [Suspect]
     Indication: MYALGIA
     Dosage: 16 MG, UNK
     Route: 048
     Dates: start: 20100621

REACTIONS (5)
  - SLEEP APNOEA SYNDROME [None]
  - PAIN [None]
  - NERVOUS SYSTEM DISORDER [None]
  - FLUID RETENTION [None]
  - GENERALISED OEDEMA [None]
